FAERS Safety Report 9422182 (Version 1)
Quarter: 2013Q3

REPORT INFORMATION
  Report Type: Spontaneous
  Country: JP (occurrence: JP)
  Receive Date: 20130726
  Receipt Date: 20130726
  Transmission Date: 20140515
  Serious: Yes (Other)
  Sender: FDA-Public Use
  Company Number: PHHY2013JP079390

PATIENT
  Sex: Female

DRUGS (2)
  1. GLIVEC [Suspect]
     Indication: GASTROINTESTINAL STROMAL TUMOUR
     Dosage: UNK
     Route: 048
  2. ACETAMINOPHEN [Interacting]
     Dosage: UNK UKN, UNK
     Route: 048

REACTIONS (3)
  - Drug interaction [Unknown]
  - Alanine aminotransferase increased [Unknown]
  - Nasopharyngitis [Unknown]
